FAERS Safety Report 21709276 (Version 1)
Quarter: 2022Q4

REPORT INFORMATION
  Report Type: Report from Study
  Country: IN (occurrence: IN)
  Receive Date: 20221210
  Receipt Date: 20221210
  Transmission Date: 20230113
  Serious: Yes (Hospitalization, Other)
  Sender: FDA-Public Use
  Company Number: IN-Accord-290761

PATIENT
  Sex: Female

DRUGS (2)
  1. CISPLATIN [Suspect]
     Active Substance: CISPLATIN
     Indication: Cervix carcinoma
     Dosage: CONCURRENT WEEKLY CHEMOTHERAPY WITH INJECTION (INJ.) CISPLATIN (30 MG/M2)
  2. CISPLATIN [Suspect]
     Active Substance: CISPLATIN
     Indication: Cervix carcinoma
     Dosage: FOLLOWED BY CONCURRENT CHEMOTHERAPY INJ. CISPLATIN (30 MG/M2).

REACTIONS (2)
  - Hydronephrosis [Recovered/Resolved]
  - Azotaemia [Unknown]
